FAERS Safety Report 9396046 (Version 1)
Quarter: 2013Q3

REPORT INFORMATION
  Report Type: Report from Study
  Country: CA (occurrence: CA)
  Receive Date: 20130711
  Receipt Date: 20130711
  Transmission Date: 20140515
  Serious: Yes (Other)
  Sender: FDA-Public Use
  Company Number: CA-JNJFOC-20120805703

PATIENT
  Age: 22 Year
  Sex: Female

DRUGS (1)
  1. STELARA [Suspect]
     Indication: PSORIASIS
     Route: 058
     Dates: start: 20120612, end: 20120725

REACTIONS (4)
  - Abasia [Recovered/Resolved]
  - Local swelling [Recovered/Resolved]
  - Eczema [Recovered/Resolved]
  - Psoriasis [Recovered/Resolved]
